FAERS Safety Report 20567620 (Version 2)
Quarter: 2022Q1

REPORT INFORMATION
  Report Type: Spontaneous
  Country: CA (occurrence: CA)
  Receive Date: 20220308
  Receipt Date: 20220325
  Transmission Date: 20220424
  Serious: Yes (Other)
  Sender: FDA-Public Use
  Company Number: CA-PFIZER INC-2020388721

PATIENT
  Age: 80 Year
  Sex: Female

DRUGS (3)
  1. IBRANCE [Suspect]
     Active Substance: PALBOCICLIB
     Dosage: 100 MG, DAILY, 21DAYS ON, 7DAYS OFF
     Route: 048
     Dates: start: 20200814
  2. IBRANCE [Suspect]
     Active Substance: PALBOCICLIB
     Dosage: 75 MG, DAILY,  DAYS 1 TO 14, OFF FOR 14 DAYS
     Route: 048
     Dates: start: 20211210
  3. IBRANCE [Suspect]
     Active Substance: PALBOCICLIB
     Dosage: 75 MG, DAILY, DAYS 1 TO 21, OFF FOR 7 DAYS

REACTIONS (5)
  - Pain in extremity [Unknown]
  - Asthenia [Unknown]
  - Myalgia [Unknown]
  - Neoplasm progression [Unknown]
  - Fatigue [Unknown]

NARRATIVE: CASE EVENT DATE: 20210101
